FAERS Safety Report 6671035-3 (Version None)
Quarter: 2010Q2

REPORT INFORMATION
  Report Type: 
  Country: None (occurrence: None)
  Receive Date: 20100407
  Receipt Date: 20100324
  Transmission Date: 20101027
  Serious: Yes (Other)
  Sender: FDA-Public Use
  Company Number: US-WATSON-2010-04223

PATIENT
  Age: 31 Year
  Sex: Male
  Weight: 102 kg

DRUGS (2)
  1. NANDROLONE DECANOATE (WATSON LABORATORIES) [Suspect]
     Indication: DRUG ABUSE
     Dosage: UNK
  2. WINSTROL [Suspect]
     Indication: DRUG ABUSE
     Dosage: UNK

REACTIONS (1)
  - FOCAL SEGMENTAL GLOMERULOSCLEROSIS [None]
